FAERS Safety Report 24837493 (Version 8)
Quarter: 2025Q2

REPORT INFORMATION
  Report Type: Spontaneous
  Country: DE (occurrence: DE)
  Receive Date: 20250113
  Receipt Date: 20250512
  Transmission Date: 20250716
  Serious: Yes (Other)
  Sender: PFIZER
  Company Number: DE-002147023-NVSC2024DE009399

PATIENT
  Sex: Female

DRUGS (7)
  1. EXEMESTANE [Suspect]
     Active Substance: EXEMESTANE
     Indication: Breast cancer metastatic
     Dosage: 25 MG, 1X/DAY
     Route: 048
     Dates: start: 20190225, end: 20230703
  2. FULVESTRANT [Suspect]
     Active Substance: FULVESTRANT
     Indication: Breast cancer metastatic
     Route: 030
     Dates: start: 20230706, end: 20240205
  3. ZOMETA [Suspect]
     Active Substance: ZOLEDRONIC ACID
     Route: 048
     Dates: start: 20200616, end: 20200816
  4. ZOMETA [Suspect]
     Active Substance: ZOLEDRONIC ACID
     Route: 065
     Dates: start: 2020, end: 20240819
  5. RIBOCICLIB [Suspect]
     Active Substance: RIBOCICLIB
     Indication: Breast cancer metastatic
     Route: 048
     Dates: start: 20190225, end: 20200615
  6. RIBOCICLIB [Suspect]
     Active Substance: RIBOCICLIB
     Route: 048
     Dates: start: 20200816, end: 20200816
  7. RIBOCICLIB [Suspect]
     Active Substance: RIBOCICLIB
     Route: 048
     Dates: start: 20200817, end: 20240216

REACTIONS (4)
  - Osteonecrosis of jaw [Recovered/Resolved with Sequelae]
  - Swelling face [Unknown]
  - Pain in jaw [Unknown]
  - Erythema [Unknown]

NARRATIVE: CASE EVENT DATE: 20240115
